FAERS Safety Report 14802860 (Version 2)
Quarter: 2018Q2

REPORT INFORMATION
  Report Type: Spontaneous
  Country: SE (occurrence: SE)
  Receive Date: 20180424
  Receipt Date: 20180531
  Transmission Date: 20180711
  Serious: Yes (Death, Other)
  Sender: FDA-Public Use
  Company Number: SE-BAUSCH-BL-2018-010915

PATIENT
  Age: 22 Month
  Sex: Male

DRUGS (2)
  1. ERYTHROMYCIN. [Suspect]
     Active Substance: ERYTHROMYCIN
     Indication: RESPIRATORY SYMPTOM
     Route: 065
  2. IBUPROFEN. [Suspect]
     Active Substance: IBUPROFEN
     Indication: RESPIRATORY SYMPTOM
     Route: 065

REACTIONS (6)
  - Loss of consciousness [Unknown]
  - Diarrhoea [Unknown]
  - Hepatic failure [Unknown]
  - Vomiting [Unknown]
  - Seizure [Unknown]
  - Death [Fatal]
